FAERS Safety Report 6906623-X (Version None)
Quarter: 2010Q3

REPORT INFORMATION
  Report Type: 
  Country: None (occurrence: None)
  Receive Date: 20100804
  Receipt Date: 20100726
  Transmission Date: 20110219
  Serious: Yes (Other)
  Sender: FDA-Public Use
  Company Number: JP-JNJFOC-20100708882

PATIENT
  Age: 62 Year
  Sex: Female

DRUGS (1)
  1. DOXIL [Suspect]
     Indication: MALIGNANT ASCITES
     Dosage: CYCLE 1
     Route: 042

REACTIONS (1)
  - INTERSTITIAL LUNG DISEASE [None]
